FAERS Safety Report 24549346 (Version 2)
Quarter: 2024Q4

REPORT INFORMATION
  Report Type: Report from Study
  Country: US (occurrence: US)
  Receive Date: 20241025
  Receipt Date: 20241111
  Transmission Date: 20250114
  Serious: Yes (Other)
  Sender: OTSUKA
  Company Number: US-OTSUKA-2024_028913

PATIENT
  Age: 62 Year
  Sex: Male
  Weight: 109.3 kg

DRUGS (8)
  1. TOLVAPTAN [Suspect]
     Active Substance: TOLVAPTAN
     Indication: Chronic kidney disease
     Dosage: 30 MG, QD
     Route: 048
     Dates: end: 20241009
  2. TOLVAPTAN [Suspect]
     Active Substance: TOLVAPTAN
     Indication: Congenital cystic kidney disease
     Dosage: 45 MG
     Route: 065
  3. TOLVAPTAN [Suspect]
     Active Substance: TOLVAPTAN
     Dosage: 15 MG
     Route: 065
  4. TOLVAPTAN [Suspect]
     Active Substance: TOLVAPTAN
     Dosage: 90 MG, QD (EVERY MORNING)
     Route: 065
     Dates: start: 20211213, end: 20230425
  5. TOLVAPTAN [Suspect]
     Active Substance: TOLVAPTAN
     Dosage: 30 MG, QD (EVERY EVENING)
     Route: 065
     Dates: start: 20211213, end: 20230425
  6. TOLVAPTAN [Suspect]
     Active Substance: TOLVAPTAN
     Dosage: 30 MG, QD (IN THE MORNING)
     Route: 048
     Dates: start: 20230426, end: 20240409
  7. TOLVAPTAN [Suspect]
     Active Substance: TOLVAPTAN
     Dosage: 15 MG, QD (IN THE EVENING)
     Route: 048
     Dates: start: 20230426, end: 20240409
  8. TOLVAPTAN [Suspect]
     Active Substance: TOLVAPTAN
     Dosage: 15 MG, QD (UNDETERMINED TIME)
     Route: 065

REACTIONS (3)
  - Rib fracture [Unknown]
  - Pollakiuria [Unknown]
  - Treatment noncompliance [Unknown]

NARRATIVE: CASE EVENT DATE: 20241009
